FAERS Safety Report 10065597 (Version 1)
Quarter: 2014Q2

REPORT INFORMATION
  Report Type: Spontaneous
  Country: US (occurrence: US)
  Receive Date: 20140408
  Receipt Date: 20140408
  Transmission Date: 20141212
  Serious: No
  Sender: FDA-Public Use
  Company Number: US-SA-2013SA127740

PATIENT
  Sex: 0

DRUGS (2)
  1. ELITEK [Suspect]
  2. OXALIPLATIN [Concomitant]

REACTIONS (1)
  - Alanine aminotransferase increased [Unknown]
